FAERS Safety Report 20442731 (Version 1)
Quarter: 2022Q1

REPORT INFORMATION
  Report Type: Spontaneous
  Country: US (occurrence: US)
  Receive Date: 20220208
  Receipt Date: 20220208
  Transmission Date: 20220424
  Serious: Yes (Other)
  Sender: FDA-Public Use
  Company Number: US-NOVARTISTESTPH-NVSC2022US026274

PATIENT
  Age: 51 Year
  Sex: Female

DRUGS (2)
  1. GLEEVEC [Suspect]
     Active Substance: IMATINIB MESYLATE
     Indication: Neoplasm malignant
     Dosage: 400 MG, QD
     Route: 048
     Dates: start: 20210330, end: 20211001
  2. GLEEVEC [Suspect]
     Active Substance: IMATINIB MESYLATE
     Dosage: 100 MG
     Route: 065

REACTIONS (6)
  - Hepatic enzyme increased [Unknown]
  - Rash [Recovered/Resolved]
  - Ulcer [Recovered/Resolved]
  - Alopecia [Recovered/Resolved]
  - Thermal burn [Recovered/Resolved]
  - Hypersensitivity [Recovered/Resolved]

NARRATIVE: CASE EVENT DATE: 20210330
